FAERS Safety Report 12827706 (Version 1)
Quarter: 2016Q4

REPORT INFORMATION
  Report Type: Spontaneous
  Country: SA (occurrence: SA)
  Receive Date: 20161007
  Receipt Date: 20161007
  Transmission Date: 20170207
  Serious: Yes (Other)
  Sender: FDA-Public Use
  Company Number: SA-PFIZER INC-2016462687

PATIENT
  Age: 29 Year
  Sex: Male

DRUGS (9)
  1. CYTARABINE. [Suspect]
     Active Substance: CYTARABINE
     Indication: CHRONIC MYELOID LEUKAEMIA
     Dosage: CYTARABINE AND IDARUBICIN (7 + 3) REGIMEN
  2. MEROPENEM. [Concomitant]
     Active Substance: MEROPENEM
     Indication: MENINGITIS BACTERIAL
     Dosage: UNK
  3. METHOTREXATE SODIUM. [Suspect]
     Active Substance: METHOTREXATE SODIUM
     Indication: CHRONIC MYELOID LEUKAEMIA
     Dosage: 16 DOSES
     Route: 037
  4. HYDROCORTISONE SODIUM SUCCINATE [Suspect]
     Active Substance: HYDROCORTISONE SODIUM SUCCINATE
     Indication: CHRONIC MYELOID LEUKAEMIA
     Dosage: 16 DOSES
     Route: 037
  5. IDARUBICIN HCL [Suspect]
     Active Substance: IDARUBICIN HYDROCHLORIDE
     Indication: CHRONIC MYELOID LEUKAEMIA
     Dosage: UNK UNK, CYCLIC
  6. DASATINIB [Suspect]
     Active Substance: DASATINIB
     Indication: CHRONIC MYELOID LEUKAEMIA
     Dosage: 70 MG ORALLY TWICE DAILY
     Route: 048
  7. CYTARABINE. [Suspect]
     Active Substance: CYTARABINE
     Dosage: 16 DOSES
     Route: 037
  8. AMPICILLIN [Concomitant]
     Active Substance: AMPICILLIN
     Indication: MENINGITIS BACTERIAL
     Dosage: UNK
  9. VANCOMYCIN [Concomitant]
     Active Substance: VANCOMYCIN
     Indication: MENINGITIS BACTERIAL
     Dosage: UNK

REACTIONS (2)
  - Infection [Unknown]
  - Pancytopenia [Unknown]
